FAERS Safety Report 4692699-X (Version None)
Quarter: 2005Q2

REPORT INFORMATION
  Report Type: 
  Country: None (occurrence: None)
  Receive Date: 20050617
  Receipt Date: 20050311
  Transmission Date: 20051028
  Serious: Yes (Hospitalization, Disabling)
  Sender: FDA-Public Use
  Company Number: US-MERCK-0503USA02791

PATIENT
  Age: 48 Year
  Sex: Male
  Weight: 132 kg

DRUGS (12)
  1. VIOXX [Suspect]
     Indication: BACK PAIN
     Route: 048
     Dates: start: 20040127, end: 20040331
  2. VIOXX [Suspect]
     Route: 048
  3. VIOXX [Suspect]
     Indication: ARTHRALGIA
     Route: 048
     Dates: start: 20040127, end: 20040331
  4. VIOXX [Suspect]
     Route: 048
  5. BEXTRA [Concomitant]
     Indication: PAIN
     Route: 048
  6. COZAAR [Concomitant]
     Indication: HYPERTENSION
     Route: 048
     Dates: start: 20041201
  7. LEVITRA [Concomitant]
     Route: 048
  8. ALLOPURINOL [Concomitant]
     Indication: GOUT
     Route: 048
  9. LORCET-HD [Concomitant]
     Route: 048
  10. LIPITOR [Concomitant]
     Route: 048
  11. COLCHICINE [Concomitant]
     Route: 065
  12. LOTREL [Concomitant]
     Route: 048

REACTIONS (14)
  - ANXIETY [None]
  - CONDITION AGGRAVATED [None]
  - CORONARY ARTERY ATHEROSCLEROSIS [None]
  - CORONARY ARTERY OCCLUSION [None]
  - DEPRESSION [None]
  - DYSPEPSIA [None]
  - EPICONDYLITIS [None]
  - HYPERGLYCAEMIA [None]
  - HYPOKALAEMIA [None]
  - INJURY [None]
  - MYOCARDIAL INFARCTION [None]
  - PEPTIC ULCER [None]
  - SLEEP APNOEA SYNDROME [None]
  - UPPER RESPIRATORY TRACT INFECTION [None]
